FAERS Safety Report 6583765-2 (Version None)
Quarter: 2010Q1

REPORT INFORMATION
  Report Type: 
  Country: None (occurrence: None)
  Receive Date: 20100213
  Receipt Date: 20100213
  Transmission Date: 20100710
  Serious: Yes (Hospitalization)
  Sender: FDA-Public Use
  Company Number: None

PATIENT
  Age: 43 Year
  Sex: Female

DRUGS (2)
  1. SUBOXONE [Suspect]
     Indication: DETOXIFICATION
     Dosage: 1 TABLET ONCE PO, 1 DOSE
     Route: 048
     Dates: start: 20100131, end: 20100131
  2. SUBOXONE [Suspect]
     Indication: PAIN
     Dosage: 1 TABLET ONCE PO, 1 DOSE
     Route: 048
     Dates: start: 20100131, end: 20100131

REACTIONS (7)
  - DIARRHOEA [None]
  - DRUG WITHDRAWAL SYNDROME [None]
  - MENTAL DISORDER [None]
  - MOVEMENT DISORDER [None]
  - MUSCLE TWITCHING [None]
  - NAUSEA [None]
  - TREMOR [None]
